FAERS Safety Report 24748784 (Version 1)
Quarter: 2024Q4

REPORT INFORMATION
  Report Type: Report from Study
  Country: CA (occurrence: CA)
  Receive Date: 20241218
  Receipt Date: 20241218
  Transmission Date: 20250114
  Serious: No
  Sender: ROCHE
  Company Number: CA-ROCHE-10000160588

PATIENT
  Sex: Male

DRUGS (1)
  1. OCREVUS [Suspect]
     Active Substance: OCRELIZUMAB
     Indication: Relapsing-remitting multiple sclerosis
     Dosage: 300 MG AT DAY 0 AND 14, THEN 600 MG EVERY 6 MONTHS
     Route: 042
     Dates: start: 20211013

REACTIONS (3)
  - Rhinorrhoea [Recovered/Resolved]
  - Cough [Recovered/Resolved]
  - COVID-19 [Unknown]
